FAERS Safety Report 4686968-7 (Version None)
Quarter: 2005Q2

REPORT INFORMATION
  Report Type: 
  Country: None (occurrence: None)
  Receive Date: 20050608
  Receipt Date: 20050530
  Transmission Date: 20051028
  Serious: Yes (Other)
  Sender: FDA-Public Use
  Company Number: CHNY2005JP01095

PATIENT
  Sex: Female

DRUGS (1)
  1. NICOTINE [Suspect]
     Indication: SMOKING CESSATION THERAPY
     Dosage: TRANSDERMAL
     Route: 062
     Dates: start: 20050511

REACTIONS (3)
  - FEELING ABNORMAL [None]
  - GASTRITIS EROSIVE [None]
  - HAEMATEMESIS [None]
